FAERS Safety Report 25750747 (Version 1)
Quarter: 2025Q3

REPORT INFORMATION
  Report Type: Spontaneous
  Country: EU (occurrence: EU)
  Receive Date: 20250902
  Receipt Date: 20250902
  Transmission Date: 20251020
  Serious: Yes (Other)
  Sender: MYLAN
  Company Number: EU-UCBSA-2025048646

PATIENT
  Age: 35 Year
  Sex: Female

DRUGS (5)
  1. LEVETIRACETAM [Suspect]
     Active Substance: LEVETIRACETAM
     Indication: Temporal lobe epilepsy
     Dosage: 1000 MILLIGRAM, BID (2X/DAY)
     Dates: end: 20220314
  2. TOPIRAMATE [Suspect]
     Active Substance: TOPIRAMATE
     Indication: Temporal lobe epilepsy
     Dosage: 50 MILLIGRAM, BID (2X/DAY)
  3. TOPIRAMATE [Suspect]
     Active Substance: TOPIRAMATE
     Dosage: 100 MILLIGRAM, BID (2X/DAY)
  4. ESLICARBAZEPINE [Suspect]
     Active Substance: ESLICARBAZEPINE
     Indication: Temporal lobe epilepsy
     Dosage: 1600 MILLIGRAM, QD (ONCE DAILY)
  5. VALPROIC ACID [Concomitant]
     Active Substance: VALPROIC ACID
     Indication: Temporal lobe epilepsy
     Dosage: 500 MILLIGRAM, BID (2X/DAY)
     Dates: start: 20220303

REACTIONS (2)
  - Psychotic disorder [Recovered/Resolved]
  - Multiple-drug resistance [Unknown]
